FAERS Safety Report 10362807 (Version 1)
Quarter: 2014Q3

REPORT INFORMATION
  Report Type: Spontaneous
  Country: ES (occurrence: ES)
  Receive Date: 20140805
  Receipt Date: 20140805
  Transmission Date: 20150326
  Serious: Yes (Death, Hospitalization, Other)
  Sender: FDA-Public Use
  Company Number: ES-TEVA-497635ISR

PATIENT
  Age: 66 Year
  Sex: Female
  Weight: 57 kg

DRUGS (3)
  1. CETUXIMAB [Concomitant]
     Active Substance: CETUXIMAB
  2. CAPECITABIN [Concomitant]
  3. OXALIPLATIN. [Suspect]
     Active Substance: OXALIPLATIN
     Dates: start: 20140701

REACTIONS (5)
  - Aphonia [Recovered/Resolved]
  - Renal impairment [Fatal]
  - General physical health deterioration [Not Recovered/Not Resolved]
  - Nervous system disorder [Fatal]
  - Dyspnoea [Recovered/Resolved]

NARRATIVE: CASE EVENT DATE: 20140701
